FAERS Safety Report 11421633 (Version 3)
Quarter: 2015Q4

REPORT INFORMATION
  Report Type: Report from Study
  Country: IN (occurrence: IN)
  Receive Date: 20150827
  Receipt Date: 20151130
  Transmission Date: 20160304
  Serious: Yes (Life-Threatening, Hospitalization)
  Sender: FDA-Public Use
  Company Number: IN-AMGEN-INDCT2015075799

PATIENT
  Age: 69 Year
  Sex: Male
  Weight: 71 kg

DRUGS (20)
  1. FOLVITE                            /00024201/ [Concomitant]
     Indication: VITAMIN SUPPLEMENTATION
     Dosage: 1 UNK, UNK
     Dates: start: 20150602
  2. RANTAC [Concomitant]
     Active Substance: RANITIDINE HYDROCHLORIDE
     Indication: HYPERCHLORHYDRIA
     Dosage: 1 UNK, UNK
     Dates: start: 20150513, end: 20150714
  3. GEMCITABINE [Concomitant]
     Active Substance: GEMCITABINE\GEMCITABINE HYDROCHLORIDE
     Dosage: 1770 MG/M2, UNK
     Dates: start: 20150513, end: 20150714
  4. CARBOPLATIN. [Concomitant]
     Active Substance: CARBOPLATIN
     Dosage: 5 UNK, UNK
     Dates: start: 20150513, end: 20150714
  5. ACTOCEF [Concomitant]
     Indication: THROMBOPHLEBITIS
     Dosage: 1 UNK, UNK
     Dates: start: 20150714
  6. DEXA                               /00008501/ [Concomitant]
     Indication: VOMITING
     Dosage: 16 MUG, UNK
     Dates: start: 20150513, end: 20150714
  7. MUCAINE                            /00115701/ [Concomitant]
     Indication: ACID PEPTIC DISEASE
     Dosage: 2 UNK, UNK
     Dates: start: 20150526, end: 20150623
  8. GRANISET [Concomitant]
     Indication: VOMITING
     Dosage: 3 MUG, UNK
     Dates: start: 20150513, end: 20150714
  9. NEUKINE [Concomitant]
     Indication: WHITE BLOOD CELL COUNT DECREASED
     Dosage: 300 MUG, UNK
     Dates: start: 20150715
  10. EMANZEN DP [Concomitant]
     Indication: INFLAMMATION
     Dosage: 1 UNK, UNK
     Dates: start: 20150714
  11. ATARAX [Concomitant]
     Active Substance: HYDROXYZINE\HYDROXYZINE HYDROCHLORIDE
     Indication: ANXIETY
     Dosage: 1 UNK, UNK
     Dates: start: 20150623, end: 20150628
  12. ZAMADOL P [Concomitant]
     Indication: PAIN
     Dosage: 1 UNK, UNK
     Dates: start: 20150526, end: 20150602
  13. THROMBOPHOB                        /00277201/ [Concomitant]
     Indication: THROMBOPHLEBITIS
     Dosage: 2 GTT, UNK
     Dates: start: 20150714
  14. GRANDEM [Concomitant]
     Indication: VOMITING
  15. BECOZINC                           /07428501/ [Concomitant]
     Indication: VITAMIN SUPPLEMENTATION
     Dosage: 1 UNK, UNK
     Dates: start: 20150602
  16. PANZOL D [Concomitant]
     Indication: VOMITING
     Dosage: 1 UNK, UNK
     Dates: start: 20150513
  17. HAEM UP                            /06275001/ [Concomitant]
     Indication: ANAEMIA
     Dosage: 2 UNK, UNK
     Dates: start: 20150707
  18. DARBEPOETIN ALFA [Suspect]
     Active Substance: DARBEPOETIN ALFA
     Indication: ANAEMIA OF MALIGNANT DISEASE
     Dosage: UNK
     Route: 065
     Dates: start: 20150513, end: 20150714
  19. GRANDEM [Concomitant]
     Indication: NAUSEA
     Dosage: 2 UNK, UNK
     Dates: start: 20150513, end: 20150708
  20. GLEVO [Concomitant]
     Indication: ANTIBIOTIC THERAPY
     Dosage: 1 UNK, UNK
     Dates: start: 20150602, end: 20150603

REACTIONS (1)
  - Pulmonary artery thrombosis [Recovered/Resolved]

NARRATIVE: CASE EVENT DATE: 20150721
